FAERS Safety Report 5212008-7 (Version None)
Quarter: 2007Q1

REPORT INFORMATION
  Report Type: 
  Country: None (occurrence: None)
  Receive Date: 20070118
  Receipt Date: 20070115
  Transmission Date: 20070707
  Serious: Yes (Other)
  Sender: FDA-Public Use
  Company Number: 001#2#2006-00562

PATIENT
  Age: 23 Year
  Sex: Male

DRUGS (2)
  1. ATMADISC MITE [Suspect]
     Route: 055
     Dates: start: 20060601, end: 20061201
  2. ATMADISC FORTE [Suspect]
     Route: 055
     Dates: start: 20061201, end: 20061201

REACTIONS (2)
  - HYPERKERATOSIS [None]
  - NEURODERMATITIS [None]
